FAERS Safety Report 7638409-5 (Version None)
Quarter: 2011Q3

REPORT INFORMATION
  Report Type: 
  Country: None (occurrence: None)
  Receive Date: 20110726
  Receipt Date: 20110726
  Transmission Date: 20111222
  Serious: Yes (Death, Life-Threatening)
  Sender: FDA-Public Use
  Company Number: None

PATIENT
  Sex: Male
  Weight: 69.5 kg

DRUGS (8)
  1. RIBAVIRIN [Suspect]
     Indication: HEPATITIS C
     Dosage: 600MG AM 400MG PM TWICE DAILY ORAL
     Route: 048
     Dates: start: 20110601, end: 20110701
  2. NEXIUM [Concomitant]
  3. PEGASYS [Suspect]
     Indication: HEPATITIS C
     Dosage: 180MCG ONCE WEEKLY SUBCUTANEOUS
     Route: 058
     Dates: start: 20110601, end: 20110701
  4. HYDROXIZINE HCL [Concomitant]
  5. NEURONTIN [Concomitant]
  6. DICLOFENAC SODIUM [Concomitant]
  7. CELEXA [Concomitant]
  8. NAPROXEN (ALEVE) [Concomitant]

REACTIONS (1)
  - DEATH [None]
